FAERS Safety Report 8620513-6 (Version None)
Quarter: 2012Q3

REPORT INFORMATION
  Report Type: 
  Country: None (occurrence: None)
  Receive Date: 20120824
  Receipt Date: 20120810
  Transmission Date: 20120928
  Serious: Yes (Death)
  Sender: FDA-Public Use
  Company Number: DE-FRI-1000037256

PATIENT
  Age: 29 Year
  Sex: Female
  Weight: 94 kg

DRUGS (3)
  1. ESCITALOPRAM [Suspect]
     Dosage: 20 MG
     Route: 048
     Dates: end: 20110101
  2. ESCITALOPRAM [Suspect]
     Dosage: 20 MG
     Route: 048
  3. ESCITALOPRAM [Suspect]
     Indication: PANIC DISORDER
     Dosage: SUSPECTED OVERDOSE (260 MG)
     Route: 048
     Dates: start: 20120711, end: 20120711

REACTIONS (2)
  - CARDIAC DEATH [None]
  - OVERDOSE [None]
